FAERS Safety Report 7039572-X (Version None)
Quarter: 2010Q4

REPORT INFORMATION
  Report Type: 
  Country: None (occurrence: None)
  Receive Date: 20101012
  Receipt Date: 20101006
  Transmission Date: 20110411
  Serious: Yes (Hospitalization)
  Sender: FDA-Public Use
  Company Number: A0786258A

PATIENT
  Age: 54 Year
  Sex: Female

DRUGS (1)
  1. AVANDIA [Suspect]
     Indication: DIABETES MELLITUS
     Dosage: 8MG PER DAY
     Dates: start: 19980101, end: 20071001

REACTIONS (4)
  - CARDIAC DISORDER [None]
  - HEPATIC FUNCTION ABNORMAL [None]
  - MYOCARDIAL INFARCTION [None]
  - RENAL FAILURE [None]
